FAERS Safety Report 24985199 (Version 11)
Quarter: 2025Q3

REPORT INFORMATION
  Report Type: Report from Study
  Country: CA (occurrence: CA)
  Receive Date: 20250219
  Receipt Date: 20250717
  Transmission Date: 20251021
  Serious: Yes (Other)
  Sender: SANDOZ
  Company Number: CA-SANDOZ-SDZ2025CA008056

PATIENT
  Sex: Female

DRUGS (2)
  1. ERELZI [Suspect]
     Active Substance: ETANERCEPT-SZZS
     Indication: Rheumatoid arthritis
     Dosage: 50 MG, WEEKLY; WEEKLY (PRE-FILLED SYRINGE)
     Route: 058
     Dates: start: 20250205
  2. PREDNISONE [Suspect]
     Active Substance: PREDNISONE
     Indication: Blood glucose decreased
     Route: 065

REACTIONS (54)
  - Epilepsy [Unknown]
  - Cataract [Unknown]
  - Rectal haemorrhage [Unknown]
  - Urinary tract infection [Unknown]
  - Muscular weakness [Unknown]
  - Eye pruritus [Unknown]
  - Eye irritation [Unknown]
  - Pain in extremity [Unknown]
  - Pain in jaw [Unknown]
  - Feeling abnormal [Unknown]
  - Influenza like illness [Unknown]
  - Illness [Unknown]
  - Peripheral coldness [Unknown]
  - Tinnitus [Unknown]
  - Nervousness [Unknown]
  - Eructation [Unknown]
  - Food intolerance [Unknown]
  - Hiatus hernia [Unknown]
  - Arthralgia [Unknown]
  - Osteoporosis [Unknown]
  - Night sweats [Unknown]
  - Feeling hot [Unknown]
  - Insomnia [Unknown]
  - Agitation [Unknown]
  - Vision blurred [Unknown]
  - Haemorrhoids [Unknown]
  - Back pain [Unknown]
  - Eye pain [Not Recovered/Not Resolved]
  - Photophobia [Unknown]
  - Abnormal dreams [Unknown]
  - Blood glucose decreased [Unknown]
  - Panic attack [Unknown]
  - Palpitations [Unknown]
  - Synovitis [Unknown]
  - Paraesthesia [Unknown]
  - Nausea [Unknown]
  - Dyspnoea [Recovering/Resolving]
  - Dyspepsia [Unknown]
  - Constipation [Unknown]
  - Asthenia [Unknown]
  - Blood pressure decreased [Unknown]
  - Chest pain [Not Recovered/Not Resolved]
  - Pain [Not Recovered/Not Resolved]
  - Paraesthesia oral [Recovered/Resolved]
  - Dry eye [Unknown]
  - Anxiety [Unknown]
  - Burning sensation [Unknown]
  - Fatigue [Unknown]
  - Alopecia [Unknown]
  - Headache [Unknown]
  - Diarrhoea [Unknown]
  - Influenza [Unknown]
  - Paraesthesia [Unknown]
  - Therapeutic product effect incomplete [Unknown]

NARRATIVE: CASE EVENT DATE: 20250101
